FAERS Safety Report 5120696-9 (Version None)
Quarter: 2006Q4

REPORT INFORMATION
  Report Type: 
  Country: None (occurrence: None)
  Receive Date: 20061004
  Receipt Date: 20060929
  Transmission Date: 20070319
  Serious: Yes (Hospitalization)
  Sender: FDA-Public Use
  Company Number: US-BOEHRINGER INGELHEIM PHARMACEUTICALS, INC.-2006-BP-11530BP

PATIENT
  Age: 68 Year
  Sex: Male

DRUGS (6)
  1. FLOMAX [Suspect]
     Indication: BENIGN PROSTATIC HYPERPLASIA
     Route: 048
  2. ATENOLOL [Concomitant]
  3. HCTZ (HYDROCHOROTHIAZIDE) [Concomitant]
  4. ASPIRIN [Concomitant]
  5. M.V.I. [Concomitant]
  6. VITAMIN E [Concomitant]

REACTIONS (5)
  - INTRAOCULAR PRESSURE INCREASED [None]
  - OCULAR HYPERAEMIA [None]
  - PULMONARY EMBOLISM [None]
  - SEXUAL DYSFUNCTION [None]
  - THROMBOSIS [None]
